FAERS Safety Report 18055950 (Version 2)
Quarter: 2020Q3

REPORT INFORMATION
  Report Type: Spontaneous
  Country: ES (occurrence: ES)
  Receive Date: 20200722
  Receipt Date: 20200918
  Transmission Date: 20201103
  Serious: Yes (Hospitalization)
  Sender: FDA-Public Use
  Company Number: ES-DSJP-DSE-2020-120824

PATIENT
  Age: 80 Year
  Sex: Female

DRUGS (2)
  1. TORASEMIDA ALTER [Interacting]
     Active Substance: TORSEMIDE
     Indication: OEDEMA PERIPHERAL
     Dosage: 10 MG
     Route: 048
     Dates: start: 20200423, end: 20200527
  2. IXIA PLUS [Suspect]
     Active Substance: HYDROCHLOROTHIAZIDE\OLMESARTAN MEDOXOMIL
     Indication: HYPERTENSION
     Dosage: 40/25MG, QD
     Route: 048
     Dates: start: 20110616

REACTIONS (2)
  - Hyponatraemia [Recovered/Resolved]
  - Drug interaction [Recovered/Resolved]

NARRATIVE: CASE EVENT DATE: 20200423
